FAERS Safety Report 9381860 (Version 2)
Quarter: 2013Q3

REPORT INFORMATION
  Report Type: Spontaneous
  Country: LT (occurrence: LT)
  Receive Date: 20130703
  Receipt Date: 20130711
  Transmission Date: 20140515
  Serious: Yes (Death)
  Sender: FDA-Public Use
  Company Number: LT-TEVA-416192ISR

PATIENT
  Age: 77 Year
  Sex: Female
  Weight: 77 kg

DRUGS (1)
  1. TEMOZOLOMIDA [Suspect]
     Indication: GLIOBLASTOMA

REACTIONS (3)
  - Thrombocytopenia [Fatal]
  - Neutropenia [Fatal]
  - Anaemia [Fatal]
